FAERS Safety Report 7050921-9 (Version None)
Quarter: 2010Q4

REPORT INFORMATION
  Report Type: 
  Country: None (occurrence: None)
  Receive Date: 20101019
  Receipt Date: 20101005
  Transmission Date: 20110411
  Serious: Yes (Hospitalization, Other)
  Sender: FDA-Public Use
  Company Number: GB-PAR PHARMACEUTICAL, INC-2010SCPR002157

PATIENT
  Age: 48 Year
  Sex: Female

DRUGS (6)
  1. RISPERIDONE [Suspect]
     Indication: PSYCHOTIC DISORDER
     Dosage: UNK
     Route: 065
  2. RISPERIDONE [Suspect]
     Indication: SCHIZOPHRENIA, PARANOID TYPE
     Dosage: 4 MG, UNK
     Route: 065
  3. RISPERIDONE [Suspect]
     Dosage: 6 MG, NOCTE
     Route: 065
  4. RISPERIDONE [Suspect]
     Dosage: 4 MG, NOCTE
     Route: 065
  5. LORAZEPAM [Concomitant]
     Indication: PSYCHOTIC DISORDER
     Dosage: 1 MG, PRN
     Route: 065
  6. LORAZEPAM [Concomitant]
     Indication: SCHIZOPHRENIA, PARANOID TYPE

REACTIONS (1)
  - DYSPHEMIA [None]
